FAERS Safety Report 10928335 (Version 2)
Quarter: 2015Q1

REPORT INFORMATION
  Report Type: Spontaneous
  Country: TW (occurrence: TW)
  Receive Date: 20150319
  Receipt Date: 20150326
  Transmission Date: 20150721
  Serious: Yes (Hospitalization)
  Sender: FDA-Public Use
  Company Number: TW-JNJFOC-20150310619

PATIENT
  Age: 73 Year
  Sex: Female
  Weight: 42 kg

DRUGS (11)
  1. SIMPONI [Suspect]
     Active Substance: GOLIMUMAB
     Indication: RHEUMATOID ARTHRITIS
     Route: 058
     Dates: start: 20130621
  2. FLOMOXEF [Concomitant]
     Active Substance: FLOMOXEF
     Route: 041
     Dates: start: 20150302, end: 20150303
  3. PLAQUENIL [Concomitant]
     Active Substance: HYDROXYCHLOROQUINE SULFATE
  4. MECLIZINE [Concomitant]
     Active Substance: MECLIZINE\MECLIZINE HYDROCHLORIDE
  5. STILNOX [Concomitant]
     Active Substance: ZOLPIDEM TARTRATE
  6. ACLASTA [Concomitant]
     Active Substance: ZOLEDRONIC ACID
     Indication: OSTEOPOROSIS
     Route: 065
  7. ETORICOXIB [Concomitant]
     Active Substance: ETORICOXIB
  8. ULTRACET [Concomitant]
     Active Substance: ACETAMINOPHEN\TRAMADOL HYDROCHLORIDE
  9. ARTELAC [Concomitant]
     Active Substance: HYPROMELLOSES
  10. CODEINE [Concomitant]
     Active Substance: CODEINE
  11. PREDNISOLONE. [Concomitant]
     Active Substance: PREDNISOLONE

REACTIONS (5)
  - Gastrointestinal haemorrhage [Not Recovered/Not Resolved]
  - Urosepsis [Not Recovered/Not Resolved]
  - Anaemia [Not Recovered/Not Resolved]
  - Upper respiratory tract infection [Not Recovered/Not Resolved]
  - Pyelonephritis acute [Not Recovered/Not Resolved]

NARRATIVE: CASE EVENT DATE: 2014
